FAERS Safety Report 19193423 (Version 2)
Quarter: 2021Q2

REPORT INFORMATION
  Report Type: Spontaneous
  Country: HR (occurrence: HR)
  Receive Date: 20210428
  Receipt Date: 20210601
  Transmission Date: 20210717
  Serious: Yes (Other)
  Sender: FDA-Public Use
  Company Number: HR-ASTRAZENECA-2021A350157

PATIENT
  Age: 58 Year
  Sex: Female

DRUGS (4)
  1. FASLODEX [Suspect]
     Active Substance: FULVESTRANT
     Indication: BREAST CANCER METASTATIC
     Dosage: 500 MG, 1, 15 AND 29TH DAY, AFTERWARDS 1 X MONTHLY
     Route: 030
     Dates: start: 20190528, end: 20191219
  2. LETROZOLE. [Suspect]
     Active Substance: LETROZOLE
     Indication: BREAST CANCER METASTATIC
     Route: 065
     Dates: start: 201912, end: 20200803
  3. CAPECITABINE. [Suspect]
     Active Substance: CAPECITABINE
     Indication: BREAST CANCER METASTATIC
     Dosage: 2500 MILLIGRAMS PER SQUARE METRE 1 ? DAILY, 1250 MG/M2, BID
     Route: 048
     Dates: start: 20200803, end: 202103
  4. PALBOCICLIB [Suspect]
     Active Substance: PALBOCICLIB
     Indication: BREAST CANCER METASTATIC
     Dosage: UNK
     Route: 065
     Dates: end: 201912

REACTIONS (4)
  - Malignant neoplasm progression [Unknown]
  - PIK3CA-activated mutation [Unknown]
  - Multiple-drug resistance [Unknown]
  - Breast cancer metastatic [Unknown]

NARRATIVE: CASE EVENT DATE: 201912
